FAERS Safety Report 25100866 (Version 4)
Quarter: 2025Q3

REPORT INFORMATION
  Report Type: Report from Study
  Country: US (occurrence: US)
  Receive Date: 20250320
  Receipt Date: 20250702
  Transmission Date: 20251021
  Serious: Yes (Other)
  Sender: NOVARTIS
  Company Number: US-002147023-NVSC2025US001220

PATIENT
  Sex: Female

DRUGS (3)
  1. GILENYA [Suspect]
     Active Substance: FINGOLIMOD HYDROCHLORIDE
     Indication: Multiple sclerosis
     Route: 065
     Dates: start: 20220101
  2. GILENYA [Suspect]
     Active Substance: FINGOLIMOD HYDROCHLORIDE
     Dosage: UNK, QD
     Route: 048
     Dates: start: 20250101
  3. KESIMPTA [Suspect]
     Active Substance: OFATUMUMAB
     Indication: Product used for unknown indication
     Route: 065

REACTIONS (16)
  - Diabetes mellitus [Unknown]
  - Glucose tolerance impaired [Recovering/Resolving]
  - Amnesia [Unknown]
  - Condition aggravated [Unknown]
  - Eye infection [Unknown]
  - Illness [Recovered/Resolved]
  - Nervousness [Unknown]
  - Injection site pain [Unknown]
  - Hypoaesthesia [Unknown]
  - Muscular weakness [Unknown]
  - Pain in extremity [Unknown]
  - Stress [Unknown]
  - Dizziness [Recovered/Resolved]
  - Nausea [Recovered/Resolved]
  - Nausea [Unknown]
  - Asthenia [Unknown]
